FAERS Safety Report 26196623 (Version 1)
Quarter: 2025Q4

REPORT INFORMATION
  Report Type: Report from Study
  Country: US (occurrence: US)
  Receive Date: 20251224
  Receipt Date: 20251224
  Transmission Date: 20260118
  Serious: Yes (Hospitalization)
  Sender: TAKEDA
  Company Number: US-TAKEDA-2025TUS116579

PATIENT
  Age: 79 Year
  Sex: Male

DRUGS (3)
  1. LANADELUMAB [Suspect]
     Active Substance: LANADELUMAB
     Indication: Hereditary angioedema
     Dosage: UNK UNK, Q2WEEKS
  2. LANADELUMAB [Suspect]
     Active Substance: LANADELUMAB
     Dosage: 300 MILLIGRAM/2 MILLILITER, Q2WEEKS
  3. LANADELUMAB [Suspect]
     Active Substance: LANADELUMAB

REACTIONS (4)
  - Movement disorder [Unknown]
  - Back disorder [Unknown]
  - Limb discomfort [Unknown]
  - Inappropriate schedule of product administration [Unknown]

NARRATIVE: CASE EVENT DATE: 20251205
